FAERS Safety Report 23019981 (Version 2)
Quarter: 2023Q4

REPORT INFORMATION
  Report Type: Report from Study
  Country: US (occurrence: US)
  Receive Date: 20231003
  Receipt Date: 20231004
  Transmission Date: 20240109
  Serious: Yes (Other)
  Sender: FDA-Public Use
  Company Number: US-ABBVIE-5430393

PATIENT
  Sex: Female

DRUGS (1)
  1. SKYRIZI [Suspect]
     Active Substance: RISANKIZUMAB-RZAA
     Indication: Crohn^s disease
     Route: 058

REACTIONS (7)
  - Ostomy bag placement [Unknown]
  - Ocular icterus [Not Recovered/Not Resolved]
  - Drug ineffective [Unknown]
  - Stoma site infection [Recovered/Resolved]
  - Anxiety [Unknown]
  - Weight increased [Unknown]
  - Faeces discoloured [Not Recovered/Not Resolved]
